FAERS Safety Report 5431542-8 (Version None)
Quarter: 2007Q3

REPORT INFORMATION
  Report Type: 
  Country: None (occurrence: None)
  Receive Date: 20070830
  Receipt Date: 20070824
  Transmission Date: 20080115
  Serious: Yes (Hospitalization)
  Sender: FDA-Public Use
  Company Number: FR-ASTRAZENECA-2007CG01221

PATIENT
  Age: 73 Year
  Sex: Female

DRUGS (2)
  1. ARIMIDEX [Suspect]
     Indication: BREAST CANCER
     Route: 048
     Dates: start: 20060701, end: 20060801
  2. ARIMIDEX [Suspect]
     Route: 048
     Dates: start: 20061001, end: 20061001

REACTIONS (1)
  - CUTANEOUS LUPUS ERYTHEMATOSUS [None]
